FAERS Safety Report 6575418-1 (Version None)
Quarter: 2010Q1

REPORT INFORMATION
  Report Type: 
  Country: None (occurrence: None)
  Receive Date: 20100208
  Receipt Date: 20100208
  Transmission Date: 20100710
  Serious: Yes (Other)
  Sender: FDA-Public Use
  Company Number: None

PATIENT
  Age: 15 Year
  Sex: Male

DRUGS (1)
  1. FLEET ENEMA UNKNOWN UNKNOWN [Suspect]
     Indication: CONSTIPATION

REACTIONS (4)
  - DYSPNOEA [None]
  - PAIN [None]
  - THROAT TIGHTNESS [None]
  - URTICARIA [None]
